FAERS Safety Report 5340403-4 (Version None)
Quarter: 2007Q2

REPORT INFORMATION
  Report Type: 
  Country: None (occurrence: None)
  Receive Date: 20070531
  Receipt Date: 20070529
  Transmission Date: 20071010
  Serious: Yes (Hospitalization)
  Sender: FDA-Public Use
  Company Number: GB-BRISTOL-MYERS SQUIBB COMPANY-13734488

PATIENT
  Age: 41 Year
  Sex: Male
  Weight: 133 kg

DRUGS (4)
  1. ARIPIPRAZOLE [Suspect]
     Indication: SCHIZOPHRENIA
     Dosage: REDUCED TO 15MG DAILY
     Route: 048
     Dates: start: 20050101
  2. EPILIM [Interacting]
     Indication: AFFECTIVE DISORDER
     Route: 048
     Dates: start: 20050101, end: 20060801
  3. EPILIM [Interacting]
     Indication: BIPOLAR DISORDER
     Route: 048
     Dates: start: 20050101, end: 20060801
  4. EPILIM [Interacting]
     Route: 048
     Dates: start: 20050101, end: 20060801

REACTIONS (6)
  - BALANCE DISORDER [None]
  - CHEST DISCOMFORT [None]
  - DRUG INTERACTION POTENTIATION [None]
  - DYSARTHRIA [None]
  - GYNAECOMASTIA [None]
  - WHEEZING [None]
